FAERS Safety Report 24231455 (Version 2)
Quarter: 2025Q2

REPORT INFORMATION
  Report Type: Spontaneous
  Country: CN (occurrence: CN)
  Receive Date: 20240821
  Receipt Date: 20250608
  Transmission Date: 20250717
  Serious: Yes (Hospitalization)
  Sender: COHERUS
  Company Number: CN-SHANGHAI JUNSHI BIOSCIENCES CO., LTD.-CN2024010967

PATIENT

DRUGS (3)
  1. TORIPALIMAB [Suspect]
     Active Substance: TORIPALIMAB
     Indication: Keratinising squamous cell carcinoma of nasopharynx
     Route: 041
     Dates: start: 20240703, end: 20240703
  2. CISPLATIN [Suspect]
     Active Substance: CISPLATIN
     Indication: Keratinising squamous cell carcinoma of nasopharynx
     Dosage: 40 MG (D1-D2), QD, 21-28 DAYS AS A CYCLE
     Route: 041
     Dates: start: 20240703, end: 20240704
  3. CISPLATIN [Suspect]
     Active Substance: CISPLATIN
     Dosage: 30 MG (D3), QD, 21-28 DAYS AS A CYCLE
     Route: 041
     Dates: start: 20240705, end: 20240705

REACTIONS (1)
  - Myelosuppression [Recovering/Resolving]

NARRATIVE: CASE EVENT DATE: 20240723
